FAERS Safety Report 6196962-5 (Version None)
Quarter: 2009Q2

REPORT INFORMATION
  Report Type: 
  Country: None (occurrence: None)
  Receive Date: 20090520
  Receipt Date: 20090511
  Transmission Date: 20091009
  Serious: Yes (Hospitalization, Other)
  Sender: FDA-Public Use
  Company Number: PHHY2009BR18506

PATIENT

DRUGS (2)
  1. TRILEPTAL [Suspect]
     Indication: CEREBRAL CALCIFICATION
     Dosage: 600 MG, UNK
     Route: 048
     Dates: start: 19960101
  2. TRILEPTAL [Suspect]
     Indication: SYNCOPE
     Dosage: 1/2 TAB IN MORNING, 1/2 TABLET IN AFTERNOON AND 1 TAB IN NIGHT
     Route: 048

REACTIONS (6)
  - ANAEMIA [None]
  - DEPRESSION [None]
  - LABYRINTHITIS [None]
  - NAUSEA [None]
  - TUMOUR EXCISION [None]
  - WEIGHT DECREASED [None]
